FAERS Safety Report 18398233 (Version 1)
Quarter: 2020Q4

REPORT INFORMATION
  Report Type: Spontaneous
  Country: NL (occurrence: NL)
  Receive Date: 20201019
  Receipt Date: 20201019
  Transmission Date: 20210114
  Serious: Yes (Other)
  Sender: FDA-Public Use
  Company Number: NL-TEVA-2020-NL-1838878

PATIENT
  Sex: Female
  Weight: 74 kg

DRUGS (2)
  1. ATORVASTATINE TABLET 20MG / BRAND NAME NOT SPECIFIED [Concomitant]
     Active Substance: ATORVASTATIN
     Dosage: 20 MG
  2. DOXYCYCLINE DISPERTABLET 100MG / BRAND NAME NOT SPECIFIED [Suspect]
     Active Substance: DOXYCYCLINE
     Indication: ERYTHEMA MIGRANS
     Dosage: 200 MILLIGRAM DAILY;
     Dates: start: 20200904, end: 20200907

REACTIONS (3)
  - Hemianopia [Recovered/Resolved]
  - Vision blurred [Recovered/Resolved]
  - Illusion [Recovered/Resolved]
